FAERS Safety Report 7392197-9 (Version None)
Quarter: 2011Q2

REPORT INFORMATION
  Report Type: 
  Country: None (occurrence: None)
  Receive Date: 20110404
  Receipt Date: 20110324
  Transmission Date: 20111010
  Serious: Yes (Other)
  Sender: FDA-Public Use
  Company Number: B0709814A

PATIENT
  Age: 63 Year
  Sex: Female

DRUGS (1)
  1. ACITRETIN [Suspect]
     Route: 065
     Dates: start: 20110210, end: 20110224

REACTIONS (10)
  - RASH MACULAR [None]
  - DRUG DISPENSING ERROR [None]
  - MEDICATION ERROR [None]
  - HEADACHE [None]
  - VOMITING [None]
  - VISUAL IMPAIRMENT [None]
  - PHOTOPSIA [None]
  - FLUSHING [None]
  - NERVOUSNESS [None]
  - DIZZINESS [None]
